FAERS Safety Report 10039433 (Version 2)
Quarter: 2014Q1

REPORT INFORMATION
  Report Type: Spontaneous
  Country: FR (occurrence: FR)
  Receive Date: 20140326
  Receipt Date: 20140328
  Transmission Date: 20141002
  Serious: Yes (Other)
  Sender: FDA-Public Use
  Company Number: PHHY2014FR036774

PATIENT
  Age: 64 Year
  Sex: Female

DRUGS (10)
  1. ZOMETA [Suspect]
     Indication: INVASIVE DUCTAL BREAST CARCINOMA
     Dosage: UNK UKN, UNK
     Route: 042
     Dates: start: 2008, end: 2011
  2. ZOMETA [Suspect]
     Indication: METASTASES TO BONE
  3. ZOMETA [Suspect]
     Indication: METASTASES TO LIVER
  4. AREDIA [Suspect]
     Indication: INVASIVE DUCTAL BREAST CARCINOMA
     Dosage: UNK UKN, UNK
     Route: 042
     Dates: start: 2008, end: 2011
  5. AREDIA [Suspect]
     Indication: METASTASES TO BONE
  6. AREDIA [Suspect]
     Indication: METASTASES TO LIVER
  7. AVASTIN [Suspect]
     Indication: INVASIVE DUCTAL BREAST CARCINOMA
     Dosage: UNK UKN, UNK
     Route: 042
     Dates: start: 20130531, end: 20130726
  8. AVASTIN [Suspect]
     Indication: METASTASES TO BONE
  9. AVASTIN [Suspect]
     Indication: METASTASES TO LIVER
  10. TAXOL [Concomitant]
     Indication: INVASIVE DUCTAL BREAST CARCINOMA
     Dosage: UNK UKN, UNK
     Route: 042
     Dates: start: 20130531

REACTIONS (1)
  - Osteonecrosis of jaw [Recovered/Resolved with Sequelae]
